FAERS Safety Report 22643533 (Version 4)
Quarter: 2023Q4

REPORT INFORMATION
  Report Type: Spontaneous
  Country: FR (occurrence: FR)
  Receive Date: 20230627
  Receipt Date: 20231201
  Transmission Date: 20240110
  Serious: Yes (Hospitalization, Other)
  Sender: FDA-Public Use
  Company Number: FR-CELLTRION INC.-2023FR012673

PATIENT

DRUGS (13)
  1. TRASTUZUMAB [Suspect]
     Active Substance: TRASTUZUMAB
     Indication: HER2 positive breast cancer
     Dosage: UNK UNK, QW (COMBINED WEEKLY INJECTIONS (INITIATED AT 16 WG TO 29 WG)), ROUTE OF ADMINISTRATION: INJ
  2. TRASTUZUMAB [Suspect]
     Active Substance: TRASTUZUMAB
     Dosage: UNK, ADDITIONAL INFORMATION ON DRUG (FREE TEXT): DOSAGE1: UNIT=NOT AVAILABLE
     Route: 065
  3. TRASTUZUMAB [Suspect]
     Active Substance: TRASTUZUMAB
     Dosage: UNKNOWN FROM 16 WEEK GESTATION TO 29 WEEK GESTATION
     Route: 065
  4. CYCLOPHOSPHAMIDE [Suspect]
     Active Substance: CYCLOPHOSPHAMIDE
     Indication: HER2 positive breast cancer
     Dosage: UNK, CYCLIC (FROM 4 WG 3 CYCLES, UNTIL 10 WG); GESTATION PERIOD AT TIME OF EXPOSURE: 1 {TRIMESTER}
     Route: 065
  5. CYCLOPHOSPHAMIDE [Suspect]
     Active Substance: CYCLOPHOSPHAMIDE
     Dosage: AT 4 WEEKS OF GESTATION (WG) FOR 3 CYCLES UNTIL 10 WG
  6. EPIRUBICIN [Suspect]
     Active Substance: EPIRUBICIN
     Indication: HER2 positive breast cancer
     Dosage: UNK, CYCLIC (FROM 4 WG 3 CYCLES, UNTIL 10 WG)/GESTATION PERIOD AT TIME OF EXPOSURE: 1 {TRIMESTER}
     Route: 065
  7. EPIRUBICIN [Suspect]
     Active Substance: EPIRUBICIN
     Dosage: AT 4 WEEKS OF GESTATION (WG) FOR 3 CYCLES UNTIL 10 WG
  8. PACLITAXEL [Suspect]
     Active Substance: PACLITAXEL
     Indication: HER2 positive breast cancer
     Dosage: UNK UNK, QW (COMBINED WEEKLY INJECTIONS (INITIATED AT 16 WG TO 29 WG)), ROUTE OF ADMINISTRATION: INJ
  9. CYCLOPHOSPHAMIDE [Suspect]
     Active Substance: CYCLOPHOSPHAMIDE
     Indication: HER2 positive breast cancer
     Dosage: UNKNOWN (FOR 3 CYCLES) FROM 4 WEEK GESTATION UNTIL 10 WEEK GESTATION
     Route: 065
  10. PACLITAXEL [Concomitant]
     Active Substance: PACLITAXEL
     Indication: HER2 positive breast cancer
     Route: 065
  11. PACLITAXEL [Concomitant]
     Active Substance: PACLITAXEL
     Dosage: FROM 16 WEEK OF GESTATION (WG) TO 29 WG
  12. PACLITAXEL [Concomitant]
     Active Substance: PACLITAXEL
     Indication: HER2 positive breast cancer
     Dosage: UNKNOWN FROM 16 WEEK GESTATION TO 29 WEEK GESTATION
     Route: 065
  13. EPIRUBICIN [Concomitant]
     Active Substance: EPIRUBICIN
     Indication: HER2 positive breast cancer
     Dosage: UNKNOWN (FOR 3 CYCLES) FROM 4 WEEK GESTATION UNTIL 10 WEEK GESTATION
     Route: 065

REACTIONS (7)
  - Abortion induced [Unknown]
  - Oligohydramnios [Not Recovered/Not Resolved]
  - Maternal exposure during pregnancy [Unknown]
  - Contraindicated product administered [Unknown]
  - Unwanted pregnancy [Unknown]
  - Maternal exposure during pregnancy [Unknown]
  - Off label use [Unknown]
